FAERS Safety Report 9530494 (Version 4)
Quarter: 2013Q4

REPORT INFORMATION
  Report Type: Spontaneous
  Country: US (occurrence: US)
  Receive Date: 20130918
  Receipt Date: 20131112
  Transmission Date: 20140711
  Serious: Yes (Hospitalization)
  Sender: FDA-Public Use
  Company Number: US-BIOGENIDEC-2013BI085427

PATIENT
  Sex: Female

DRUGS (6)
  1. TECFIDERA [Suspect]
     Indication: MULTIPLE SCLEROSIS
     Route: 048
     Dates: start: 20130717
  2. LASIX [Concomitant]
  3. RAMIPRIL [Concomitant]
  4. PREDNISONE [Concomitant]
  5. METHYLPREDNISOLONE [Concomitant]
  6. BACLOFEN PUMP [Concomitant]

REACTIONS (5)
  - Fluid retention [Unknown]
  - Urinary tract infection [Recovered/Resolved]
  - Incoherent [Unknown]
  - Dysphagia [Unknown]
  - Nausea [Unknown]
